FAERS Safety Report 22362593 (Version 7)
Quarter: 2024Q3

REPORT INFORMATION
  Report Type: Report from Study
  Country: US (occurrence: US)
  Receive Date: 20230524
  Receipt Date: 20240730
  Transmission Date: 20241016
  Serious: Yes (Disabling, Other)
  Sender: AMGEN
  Company Number: US-HORIZON THERAPEUTICS-HZN-2022-006160

PATIENT
  Age: 65 Year
  Sex: Male
  Weight: 94.331 kg

DRUGS (24)
  1. TEPEZZA [Suspect]
     Active Substance: TEPROTUMUMAB-TRBW
     Indication: Endocrine ophthalmopathy
     Dosage: 970 MILLIGRAM (FIRST INFUSION)
     Route: 042
     Dates: start: 20220624
  2. TEPEZZA [Suspect]
     Active Substance: TEPROTUMUMAB-TRBW
     Indication: Graves^ disease
     Dosage: 1940 MILLIGRAM (SECOND DOSE)
     Route: 042
     Dates: start: 20220715
  3. TEPEZZA [Suspect]
     Active Substance: TEPROTUMUMAB-TRBW
     Dosage: 1940 MILLIGRAM (THIRD INFUSION)
     Route: 042
     Dates: start: 20220805
  4. TEPEZZA [Suspect]
     Active Substance: TEPROTUMUMAB-TRBW
     Dosage: 1940 MILLIGRAM (FOURTH INFUSION)
     Route: 042
     Dates: start: 20220826
  5. TEPEZZA [Suspect]
     Active Substance: TEPROTUMUMAB-TRBW
     Dosage: UNK, (FIFTH INFUSION)
     Route: 042
     Dates: start: 2022
  6. TEPEZZA [Suspect]
     Active Substance: TEPROTUMUMAB-TRBW
     Dosage: UNK (LAST INFUSION)
     Route: 042
     Dates: start: 202209
  7. CRESTOR [Concomitant]
     Active Substance: ROSUVASTATIN CALCIUM
     Dosage: 1 TABLET ONCE DAILY
     Route: 048
     Dates: start: 20220711
  8. AMLODIPINE [Concomitant]
     Active Substance: AMLODIPINE BESYLATE
     Dosage: 1 TABLET ONCE DAILY
     Route: 048
     Dates: start: 20220607
  9. METHIMAZOLE [Concomitant]
     Active Substance: METHIMAZOLE
     Dosage: 1 TABLET EVERY DAY
     Route: 048
     Dates: start: 20220730
  10. VALSARTAN [Concomitant]
     Active Substance: VALSARTAN
     Dosage: 1 TABLET EVERY DAY
     Route: 048
     Dates: start: 20220110
  11. CIPRO [Concomitant]
     Active Substance: CIPROFLOXACIN HYDROCHLORIDE
     Dosage: 1 TABLET EVERY 12 HOURS
     Route: 048
     Dates: start: 20220919
  12. DEXTROSE [Concomitant]
     Active Substance: DEXTROSE\DEXTROSE MONOHYDRATE
     Indication: Hypoglycaemia
     Dosage: 4 TABS PO AS NEEDED CAN REPEAT Q15MIN AS NEEDED
     Route: 048
     Dates: start: 20220919
  13. MUPIROCIN [Concomitant]
     Active Substance: MUPIROCIN
     Dosage: 2 TIMES EVERY DAY A SMALL AMOUNT TO THE AFFECTED AREA
     Route: 061
     Dates: start: 20220919
  14. TRULICITY [Concomitant]
     Active Substance: DULAGLUTIDE
     Dosage: 0.75MG/0.5 ML
     Route: 058
     Dates: start: 20220919
  15. VITAMIN D3 [Concomitant]
     Active Substance: CHOLECALCIFEROL
     Dosage: 1 TABLET EVERY DAY
     Route: 048
  16. OZEMPIC [Concomitant]
     Active Substance: SEMAGLUTIDE
  17. ZOFRAN [Concomitant]
     Active Substance: ONDANSETRON HYDROCHLORIDE
     Dosage: 4 MILLIGRAM
  18. TYLENOL [Concomitant]
     Active Substance: ACETAMINOPHEN
     Dosage: 650 MILLIGRAM
     Route: 048
  19. ROXICODONE [Concomitant]
     Active Substance: OXYCODONE HYDROCHLORIDE
     Dosage: 5 MILLIGRAM
  20. COZAAR [Concomitant]
     Active Substance: LOSARTAN POTASSIUM
     Dosage: 100 MILLIGRAM
  21. BAYER ASPIRIN [Concomitant]
     Active Substance: ASPIRIN
     Dosage: 81 MILLIGRAM
  22. SUBLIMAZE [Concomitant]
     Active Substance: FENTANYL CITRATE
     Dosage: 25 MICROGRAM
  23. XYLOCAINE [Concomitant]
     Active Substance: LIDOCAINE HYDROCHLORIDE\LIDOCAINE HYDROCHLORIDE ANHYDROUS
     Dosage: UNK (ONE PERCENT)
  24. DIPRIVAN [Concomitant]
     Active Substance: ISOPROPYL ALCOHOL\PROPOFOL
     Dosage: 10 MILLIGRAM PER MILLILITRE
     Route: 042

REACTIONS (14)
  - Deafness permanent [Not Recovered/Not Resolved]
  - Graves^ disease [Not Recovered/Not Resolved]
  - Endocrine ophthalmopathy [Not Recovered/Not Resolved]
  - Dyspnoea [Unknown]
  - Anxiety [Not Recovered/Not Resolved]
  - Emotional distress [Not Recovered/Not Resolved]
  - Abdominal pain [Unknown]
  - Hyperglycaemia [Unknown]
  - Alopecia [Unknown]
  - Muscle spasms [Unknown]
  - Fatigue [Unknown]
  - Localised infection [Unknown]
  - Bradycardia [Unknown]
  - Strabismus [Unknown]

NARRATIVE: CASE EVENT DATE: 20220101
